FAERS Safety Report 14354050 (Version 2)
Quarter: 2018Q3

REPORT INFORMATION
  Report Type: Spontaneous
  Country: US (occurrence: US)
  Receive Date: 20180105
  Receipt Date: 20180806
  Transmission Date: 20181010
  Serious: No
  Sender: FDA-Public Use
  Company Number: US-EMD SERONO-9005537

PATIENT
  Sex: Female

DRUGS (1)
  1. REBIF [Suspect]
     Active Substance: INTERFERON BETA-1A
     Indication: MULTIPLE SCLEROSIS
     Route: 058
     Dates: start: 20040212

REACTIONS (4)
  - Fatigue [Unknown]
  - Somnolence [Unknown]
  - Drug dose omission [Unknown]
  - Nuclear magnetic resonance imaging abnormal [Unknown]
